FAERS Safety Report 15389914 (Version 1)
Quarter: 2018Q3

REPORT INFORMATION
  Report Type: Spontaneous
  Country: US (occurrence: US)
  Receive Date: 20180907
  Receipt Date: 20180907
  Transmission Date: 20181010
  Serious: Yes (Other)
  Sender: FDA-Public Use
  Company Number: None

PATIENT
  Age: 38 Year
  Sex: Female
  Weight: 54 kg

DRUGS (7)
  1. VITAMIN D [Concomitant]
     Active Substance: CHOLECALCIFEROL
  2. CLARITIN [Concomitant]
     Active Substance: LORATADINE
  3. AIM CAVITY PROTECTION MULTI BENEFIT [Suspect]
     Active Substance: SODIUM FLUORIDE
     Indication: DENTAL CLEANING
     Dates: start: 20180828, end: 20180828
  4. FOLIC ACID. [Concomitant]
     Active Substance: FOLIC ACID
  5. DHEA [Concomitant]
     Active Substance: PRASTERONE
  6. PRENATAL VITAMINS [Concomitant]
     Active Substance: VITAMINS
  7. QVAR [Concomitant]
     Active Substance: BECLOMETHASONE DIPROPIONATE

REACTIONS (7)
  - Drug hypersensitivity [None]
  - Musculoskeletal stiffness [None]
  - Tongue disorder [None]
  - Allergic reaction to excipient [None]
  - Application site hypoaesthesia [None]
  - Application site urticaria [None]
  - Application site swelling [None]

NARRATIVE: CASE EVENT DATE: 20180828
